FAERS Safety Report 16916701 (Version 2)
Quarter: 2023Q4

REPORT INFORMATION
  Report Type: Spontaneous
  Country: US (occurrence: US)
  Receive Date: 20191015
  Receipt Date: 20231123
  Transmission Date: 20240110
  Serious: Yes (Other)
  Sender: FDA-Public Use
  Company Number: US-AUROBINDO-AUR-APL-2019-065078

PATIENT
  Age: 31 Year
  Sex: Male

DRUGS (1)
  1. CAPECITABINE [Suspect]
     Active Substance: CAPECITABINE
     Indication: Adenocarcinoma of colon
     Dosage: UNK UNK, CYCLICAL
     Route: 065
     Dates: start: 201302, end: 2013

REACTIONS (4)
  - Mycotic endophthalmitis [Unknown]
  - Diarrhoea [Unknown]
  - Dehydration [Unknown]
  - Toxicity to various agents [Unknown]

NARRATIVE: CASE EVENT DATE: 20130101
